FAERS Safety Report 14522954 (Version 2)
Quarter: 2019Q1

REPORT INFORMATION
  Report Type: Report from Study
  Country: US (occurrence: US)
  Receive Date: 20180212
  Receipt Date: 20190215
  Transmission Date: 20190417
  Serious: Yes (Hospitalization, Other)
  Sender: FDA-Public Use
  Company Number: US-AMAG PHARMACEUTICALS, INC.-AMAG201800019

PATIENT

DRUGS (5)
  1. ASA [Concomitant]
     Active Substance: ASPIRIN
     Indication: BLOOD PRESSURE INCREASED
     Dosage: 81 MG, QD
     Route: 048
     Dates: start: 20171109, end: 20171218
  2. ASA [Concomitant]
     Active Substance: ASPIRIN
     Indication: OBESITY
  3. ASA [Concomitant]
     Active Substance: ASPIRIN
     Indication: HIGH RISK PREGNANCY
  4. FERROUS SULFATE. [Concomitant]
     Active Substance: FERROUS SULFATE
     Indication: ANAEMIA
     Dosage: 650 MG, QD
     Route: 048
     Dates: start: 20171113, end: 20171219
  5. MAKENA [Suspect]
     Active Substance: HYDROXYPROGESTERONE CAPROATE
     Indication: PREMATURE DELIVERY
     Dosage: 250 MG/ML, WEEKLY
     Route: 030
     Dates: start: 20171116, end: 20171213

REACTIONS (7)
  - Nausea [Unknown]
  - Vomiting [Unknown]
  - Urinary tract infection [Unknown]
  - Preterm premature rupture of membranes [Recovered/Resolved]
  - Breech presentation [Recovered/Resolved]
  - Premature delivery [Recovered/Resolved]
  - Dyspepsia [Unknown]

NARRATIVE: CASE EVENT DATE: 20171122
